FAERS Safety Report 4520446-0 (Version None)
Quarter: 2004Q4

REPORT INFORMATION
  Report Type: 
  Country: None (occurrence: None)
  Receive Date: 20041203
  Receipt Date: 20041116
  Transmission Date: 20050328
  Serious: Yes (Hospitalization)
  Sender: FDA-Public Use
  Company Number: 2004-DE-05853GD

PATIENT
  Age: 80 Year
  Sex: Male

DRUGS (6)
  1. ACETAMINOPHEN AND CODEINE PHOSPHATE [Suspect]
     Indication: PAIN
  2. IPRATROPIUM-BROMIDE+SALBUTAMOL (COMBIVENT) (SALBUTAMOL, IPRATROPIUM-BR [Concomitant]
  3. PHENYTOIN [Concomitant]
  4. DOXEPIN (DOXEPIN) [Concomitant]
  5. CLOPIDOGREL (CLOPIDOGREL) [Concomitant]
  6. ATORVASTATIN (ATORVASTATIN) [Concomitant]

REACTIONS (7)
  - DISORIENTATION [None]
  - DIZZINESS [None]
  - DYSPNOEA [None]
  - GAIT DISTURBANCE [None]
  - HERPES ZOSTER [None]
  - PAIN [None]
  - RASH MACULO-PAPULAR [None]
